FAERS Safety Report 19273181 (Version 1)
Quarter: 2021Q2

REPORT INFORMATION
  Report Type: Spontaneous
  Country: US (occurrence: US)
  Receive Date: 20210518
  Receipt Date: 20210518
  Transmission Date: 20210717
  Serious: No
  Sender: FDA-Public Use
  Company Number: US-DRREDDYS-USA/USA/21/0135468

PATIENT
  Age: 38 Year
  Sex: Male
  Weight: 78.75 kg

DRUGS (1)
  1. FEXOFENADINE HCL [Suspect]
     Active Substance: FEXOFENADINE HYDROCHLORIDE
     Indication: SEASONAL ALLERGY
     Dosage: ACCIDENTALLY TOOK 2 DOSAGE FORMS AT ONCE

REACTIONS (2)
  - Accidental overdose [Unknown]
  - Fatigue [Unknown]
